FAERS Safety Report 9261920 (Version 1)
Quarter: 2013Q2

REPORT INFORMATION
  Report Type: Spontaneous
  Country: US (occurrence: US)
  Receive Date: 20130429
  Receipt Date: 20130429
  Transmission Date: 20140414
  Serious: Yes (Hospitalization, Other)
  Sender: FDA-Public Use
  Company Number: US-UCBSA-073027

PATIENT
  Age: 42 Year
  Sex: Female

DRUGS (3)
  1. KEPPRA XR [Suspect]
     Indication: CONVULSION
     Dates: start: 20120322, end: 20130415
  2. SPIRONOLACTONE [Concomitant]
     Indication: CARDIAC DISORDER
  3. METHADONE [Concomitant]
     Indication: JOINT DISLOCATION

REACTIONS (12)
  - Grand mal convulsion [Recovered/Resolved]
  - Convulsion [Recovered/Resolved]
  - Feeling abnormal [Unknown]
  - Contusion [Recovering/Resolving]
  - Head injury [Unknown]
  - Loss of consciousness [Recovered/Resolved]
  - Swelling [Recovering/Resolving]
  - Tremor [Unknown]
  - Musculoskeletal stiffness [Unknown]
  - Fatigue [Not Recovered/Not Resolved]
  - Confusional state [Unknown]
  - Inappropriate schedule of drug administration [Unknown]
